FAERS Safety Report 12420849 (Version 1)
Quarter: 2016Q2

REPORT INFORMATION
  Report Type: Spontaneous
  Country: US (occurrence: US)
  Receive Date: 20160531
  Receipt Date: 20160531
  Transmission Date: 20160815
  Serious: Yes (Other)
  Sender: FDA-Public Use
  Company Number: US-PROCTER_AND_GAMBLE-GS16065842

PATIENT
  Age: 8 Year
  Sex: Female

DRUGS (1)
  1. CREST KIDS CAVITY PROTECTION SPARKLE FUN [Suspect]
     Active Substance: SODIUM FLUORIDE
     Dosage: RECOMMENDED DOSE ONCE LAST NIGHT
     Route: 002
     Dates: start: 20160517, end: 20160517

REACTIONS (4)
  - Swelling [Recovered/Resolved]
  - Urticaria [Recovered/Resolved]
  - Hypersensitivity [Recovered/Resolved]
  - Swelling face [Recovered/Resolved]

NARRATIVE: CASE EVENT DATE: 20160517
